FAERS Safety Report 6122328-X (Version None)
Quarter: 2009Q1

REPORT INFORMATION
  Report Type: 
  Country: None (occurrence: None)
  Receive Date: 20090318
  Receipt Date: 20090310
  Transmission Date: 20090719
  Serious: Yes (Death)
  Sender: FDA-Public Use
  Company Number: US-BIOGENIDEC-2009BI002070

PATIENT
  Sex: Male
  Weight: 56 kg

DRUGS (2)
  1. AVONEX [Suspect]
     Indication: MULTIPLE SCLEROSIS
     Route: 030
     Dates: start: 20030101, end: 20061101
  2. AVONEX [Suspect]
     Route: 030
     Dates: start: 20070201

REACTIONS (4)
  - ARTERIOSCLEROSIS CORONARY ARTERY [None]
  - BRONCHIECTASIS [None]
  - OVERDOSE [None]
  - RENAL DISORDER [None]
